FAERS Safety Report 11474420 (Version 1)
Quarter: 2015Q3

REPORT INFORMATION
  Report Type: Spontaneous
  Country: US (occurrence: US)
  Receive Date: 20150908
  Receipt Date: 20150908
  Transmission Date: 20151125
  Serious: No
  Sender: FDA-Public Use
  Company Number: US-JAZZ-2014-US-005259

PATIENT
  Age: 73 Year
  Sex: Male

DRUGS (4)
  1. XYREM [Suspect]
     Active Substance: SODIUM OXYBATE
     Dosage: UNK
  2. PREDNISONE. [Concomitant]
     Active Substance: PREDNISONE
     Indication: BRONCHITIS
     Dosage: UNK
     Dates: start: 20140422
  3. PREDNISONE. [Concomitant]
     Active Substance: PREDNISONE
     Indication: SINUSITIS
  4. XYREM [Suspect]
     Active Substance: SODIUM OXYBATE
     Indication: NARCOLEPSY
     Dosage: 3 G, BID
     Route: 048
     Dates: start: 20140421, end: 2014

REACTIONS (9)
  - Wrong technique in product usage process [Unknown]
  - Diarrhoea [Unknown]
  - Palpitations [Unknown]
  - Gait disturbance [Unknown]
  - Pneumonia [Recovering/Resolving]
  - Sensation of foreign body [Unknown]
  - Head discomfort [Unknown]
  - Abdominal distension [Unknown]
  - Insomnia [Unknown]

NARRATIVE: CASE EVENT DATE: 20140423
